FAERS Safety Report 17450279 (Version 2)
Quarter: 2020Q3

REPORT INFORMATION
  Report Type: Spontaneous
  Country: FR (occurrence: FR)
  Receive Date: 20200224
  Receipt Date: 20200708
  Transmission Date: 20201102
  Serious: Yes (Death, Other)
  Sender: FDA-Public Use
  Company Number: FR-SA-2020SA046016

PATIENT

DRUGS (21)
  1. XYDALBA [Suspect]
     Active Substance: DALBAVANCIN HYDROCHLORIDE
     Indication: STAPHYLOCOCCAL INFECTION
     Dosage: 1800 MG, QD
     Route: 048
     Dates: start: 20191230, end: 20200114
  2. DOXYCYCLINE. [Suspect]
     Active Substance: DOXYCYCLINE
     Indication: STAPHYLOCOCCAL INFECTION
     Dosage: 200 MG, QD
     Route: 048
     Dates: start: 20200124, end: 20200130
  3. ZINFORO [Suspect]
     Active Substance: CEFTAROLINE FOSAMIL
     Indication: STAPHYLOCOCCAL INFECTION
     Dosage: 1800 MG, QD
     Route: 048
     Dates: start: 20191230, end: 20200114
  4. BACTRIM [Concomitant]
     Active Substance: SULFAMETHOXAZOLE\TRIMETHOPRIM
  5. DAPTOMYCINE ACCORD [Suspect]
     Active Substance: DAPTOMYCIN
     Dosage: 10 MG, QD
     Route: 037
     Dates: start: 20200114, end: 20200120
  6. DAPTOMYCINE ACCORD [Suspect]
     Active Substance: DAPTOMYCIN
     Indication: STAPHYLOCOCCAL INFECTION
     Dosage: 700 MG, QD
     Route: 042
     Dates: start: 20200110, end: 20200120
  7. DIFFU K [Concomitant]
     Active Substance: POTASSIUM CHLORIDE
  8. LEVETIRACETAM MYLAN [Concomitant]
     Active Substance: LEVETIRACETAM
  9. MOVICOL [MACROGOL 4000;POTASSIUM CHLORIDE;SODIUM BICARBONATE;SODIUM CH [Concomitant]
  10. RIFADINE [Suspect]
     Active Substance: RIFAMPIN
     Indication: STAPHYLOCOCCAL INFECTION
     Dosage: 1200 MG, QD
     Route: 041
     Dates: start: 20200121, end: 20200130
  11. LINEZOLID. [Suspect]
     Active Substance: LINEZOLID
     Indication: STAPHYLOCOCCAL INFECTION
     Dosage: 1200 MG, QD
     Route: 048
     Dates: start: 20191226, end: 20191230
  12. XYDALBA [Suspect]
     Active Substance: DALBAVANCIN HYDROCHLORIDE
     Dosage: 1500 MG, QD
     Route: 042
     Dates: start: 20200110, end: 20200120
  13. DIFFU K [Concomitant]
     Active Substance: POTASSIUM CHLORIDE
  14. DOLIPRANE [Concomitant]
     Active Substance: ACETAMINOPHEN
  15. LEVETIRACETAM MYLAN [Concomitant]
     Active Substance: LEVETIRACETAM
  16. BACLOFEN. [Concomitant]
     Active Substance: BACLOFEN
  17. VANCOMYCIN [Suspect]
     Active Substance: VANCOMYCIN
     Indication: STAPHYLOCOCCAL INFECTION
     Dosage: 2.5 G, QD
     Route: 037
     Dates: start: 20200124, end: 20200130
  18. LANSOPRAZOLE MYLAN [Concomitant]
     Active Substance: LANSOPRAZOLE
  19. CEFOTAXIME SODIUM [Suspect]
     Active Substance: CEFOTAXIME SODIUM
     Indication: STAPHYLOCOCCAL INFECTION
     Dosage: 3000 MG, QD
     Route: 042
     Dates: start: 20191226, end: 20191230
  20. NEFOPAM MEDISOL [Concomitant]
     Active Substance: NEFOPAM HYDROCHLORIDE
  21. LOVENOX [Concomitant]
     Active Substance: ENOXAPARIN SODIUM

REACTIONS (3)
  - Metabolic encephalopathy [Fatal]
  - Confusional state [Fatal]
  - Myoclonus [Fatal]

NARRATIVE: CASE EVENT DATE: 20200126
